FAERS Safety Report 4439880-2 (Version None)
Quarter: 2004Q3

REPORT INFORMATION
  Report Type: 
  Country: None (occurrence: None)
  Receive Date: 20040831
  Receipt Date: 20040816
  Transmission Date: 20050211
  Serious: Yes (Hospitalization)
  Sender: FDA-Public Use
  Company Number: 04P-167-0270887-00

PATIENT
  Age: 68 Year
  Sex: Female
  Weight: 72 kg

DRUGS (10)
  1. HUMIRA [Suspect]
     Dosage: 40 MG, ^407M^, SUBCUTANEOUS
     Route: 058
     Dates: start: 20040301, end: 20040701
  2. METHOTREXATE [Concomitant]
  3. OMEPRAZOLE [Concomitant]
  4. CLOPIDOGREL [Concomitant]
  5. ATORVASTATIN CALCIUM [Concomitant]
  6. ATENOLOL [Concomitant]
  7. CEPHALEXIN [Concomitant]
  8. DIDRONEL [Concomitant]
  9. AMITRIPTYLINE HCL [Concomitant]
  10. PREDNISOLONE [Concomitant]

REACTIONS (3)
  - ABDOMINAL PAIN [None]
  - PLEURAL EFFUSION [None]
  - SPLENIC INFARCTION [None]
